FAERS Safety Report 10358063 (Version 3)
Quarter: 2014Q3

REPORT INFORMATION
  Report Type: Spontaneous
  Country: US (occurrence: US)
  Receive Date: 20140801
  Receipt Date: 20140915
  Transmission Date: 20150326
  Serious: Yes (Other)
  Sender: FDA-Public Use
  Company Number: US-BAYER-2014-112967

PATIENT
  Age: 27 Year
  Sex: Female

DRUGS (1)
  1. MIRENA [Suspect]
     Active Substance: LEVONORGESTREL
     Indication: CONTRACEPTION
     Dosage: 20 MCG/24HR, CONT
     Route: 015
     Dates: start: 20121025, end: 20140520

REACTIONS (17)
  - Device defective [None]
  - Anhedonia [None]
  - Device issue [None]
  - Injury [None]
  - Medical device complication [None]
  - Anxiety [None]
  - Medical device discomfort [None]
  - Movement disorder [None]
  - Procedural anxiety [None]
  - Uterine perforation [None]
  - Sleep disorder [None]
  - Vaginal haemorrhage [None]
  - Hydrometra [None]
  - Uterine spasm [None]
  - Pelvic pain [None]
  - Fear [None]
  - Emotional distress [None]

NARRATIVE: CASE EVENT DATE: 201211
